FAERS Safety Report 8436503-2 (Version None)
Quarter: 2012Q2

REPORT INFORMATION
  Report Type: 
  Country: None (occurrence: None)
  Receive Date: 20120614
  Receipt Date: 20120606
  Transmission Date: 20120825
  Serious: Yes (Hospitalization, Other)
  Sender: FDA-Public Use
  Company Number: US-GLAXOSMITHKLINE-A0951801A

PATIENT
  Age: 49 Year
  Sex: Female

DRUGS (3)
  1. FLOLAN [Suspect]
     Indication: PULMONARY ARTERIAL HYPERTENSION
     Dosage: 46NGKM SEE DOSAGE TEXT
     Route: 065
     Dates: start: 20061024
  2. ADCIRCA [Concomitant]
     Indication: PRODUCT USED FOR UNKNOWN INDICATION
     Dosage: 40MG PER DAY
     Route: 065
  3. SODIUM THIOSULFATE [Concomitant]
     Indication: PRODUCT USED FOR UNKNOWN INDICATION
     Route: 065

REACTIONS (6)
  - EYE IRRITATION [None]
  - FEELING HOT [None]
  - RENAL FAILURE [None]
  - PERITONITIS [None]
  - ERYTHEMA [None]
  - NAUSEA [None]
